FAERS Safety Report 9463628 (Version 2)
Quarter: 2013Q3

REPORT INFORMATION
  Report Type: Report from Study
  Country: CA (occurrence: CA)
  Receive Date: 20130819
  Receipt Date: 20130912
  Transmission Date: 20140515
  Serious: Yes (Hospitalization, Other)
  Sender: FDA-Public Use
  Company Number: CA-ROCHE-1262806

PATIENT
  Age: 76 Year
  Sex: Female

DRUGS (3)
  1. RANIBIZUMAB [Suspect]
     Indication: AGE-RELATED MACULAR DEGENERATION
     Route: 050
  2. RANIBIZUMAB [Suspect]
     Route: 050
     Dates: start: 20130418
  3. RANIBIZUMAB [Suspect]
     Route: 050
     Dates: start: 20130808, end: 20130808

REACTIONS (1)
  - Cardiovascular disorder [Unknown]
